FAERS Safety Report 7831555-2 (Version None)
Quarter: 2011Q4

REPORT INFORMATION
  Report Type: 
  Country: None (occurrence: None)
  Receive Date: 20111021
  Receipt Date: 20111013
  Transmission Date: 20120403
  Serious: Yes (Hospitalization, Other)
  Sender: FDA-Public Use
  Company Number: US-CELGENEUS-163-21880-11092290

PATIENT
  Sex: Female
  Weight: 78.996 kg

DRUGS (2)
  1. REVLIMID [Suspect]
     Indication: MYELODYSPLASTIC SYNDROME
     Dosage: 10 MILLIGRAM
     Route: 048
     Dates: start: 20100601
  2. EXJADE [Concomitant]
     Route: 065

REACTIONS (2)
  - PSEUDOMONAL SEPSIS [None]
  - ATRIAL FIBRILLATION [None]
